FAERS Safety Report 5456577-0 (Version None)
Quarter: 2007Q3

REPORT INFORMATION
  Report Type: 
  Country: None (occurrence: None)
  Receive Date: 20070918
  Receipt Date: 20070330
  Transmission Date: 20080115
  Serious: Yes (Other)
  Sender: FDA-Public Use
  Company Number: US-ASTRAZENECA-2006UW25303

PATIENT
  Age: 37 Year
  Sex: Female
  Weight: 57.7 kg

DRUGS (17)
  1. SEROQUEL [Suspect]
     Indication: DEPRESSION
     Dosage: 100 TO 300 MG
     Route: 048
     Dates: start: 20061101, end: 20070101
  2. ABILIFY [Concomitant]
     Dates: start: 20030101, end: 20060101
  3. GEODON [Concomitant]
     Dates: start: 20070101
  4. HALDOL [Concomitant]
     Dates: start: 20050101, end: 20060101
  5. RISPERDAL [Concomitant]
  6. ZYPREXA [Concomitant]
  7. LEXAPRO [Concomitant]
  8. TRILEPTAL [Concomitant]
  9. ATIVAN [Concomitant]
  10. ELAVIL [Concomitant]
  11. VALIUM [Concomitant]
  12. XANAX [Concomitant]
  13. PAXIL [Concomitant]
  14. KLONOPIN [Concomitant]
  15. LAMICTAL [Concomitant]
  16. DEPAKOTE [Concomitant]
  17. TOPAMAX [Concomitant]
     Dates: start: 20020101

REACTIONS (2)
  - DIABETES MELLITUS [None]
  - KETOACIDOSIS [None]
